FAERS Safety Report 5625057-1 (Version None)
Quarter: 2008Q1

REPORT INFORMATION
  Report Type: 
  Country: None (occurrence: None)
  Receive Date: 20080213
  Receipt Date: 20080204
  Transmission Date: 20080703
  Serious: Yes (Death, Hospitalization)
  Sender: FDA-Public Use
  Company Number: HR-PFIZER INC-2008005683

PATIENT
  Sex: Male
  Weight: 93 kg

DRUGS (2)
  1. SU-011,248 [Suspect]
     Indication: METASTATIC RENAL CELL CARCINOMA
     Route: 048
     Dates: start: 20070420, end: 20070628
  2. SU-011,248 [Suspect]
     Route: 048
     Dates: start: 20070712, end: 20071223

REACTIONS (2)
  - GENERAL PHYSICAL HEALTH DETERIORATION [None]
  - HYPOGLYCAEMIA [None]
